FAERS Safety Report 8381822-1 (Version None)
Quarter: 2012Q2

REPORT INFORMATION
  Report Type: 
  Country: None (occurrence: None)
  Receive Date: 20120524
  Receipt Date: 20120518
  Transmission Date: 20120825
  Serious: Yes (Other)
  Sender: FDA-Public Use
  Company Number: US-SHIRE-ALL1-2012-02555

PATIENT
  Sex: Male

DRUGS (3)
  1. WELLBUTRIN [Concomitant]
     Indication: PRODUCT USED FOR UNKNOWN INDICATION
     Dosage: UNK, UNKNOWN
     Route: 048
  2. CYMBALTA [Concomitant]
     Indication: PRODUCT USED FOR UNKNOWN INDICATION
     Dosage: UNK, UNKNOWN
     Route: 048
  3. PENTASA [Suspect]
     Indication: CROHN'S DISEASE
     Dosage: UNK, UNKNOWN
     Route: 048

REACTIONS (9)
  - OFF LABEL USE [None]
  - HYPERHIDROSIS [None]
  - PYREXIA [None]
  - DIZZINESS [None]
  - HEADACHE [None]
  - TREMOR [None]
  - CHILLS [None]
  - NAUSEA [None]
  - SYNCOPE [None]
